FAERS Safety Report 4486339-2 (Version None)
Quarter: 2004Q4

REPORT INFORMATION
  Report Type: 
  Country: None (occurrence: None)
  Receive Date: 20041022
  Receipt Date: 20041008
  Transmission Date: 20050328
  Serious: Yes (Other)
  Sender: FDA-Public Use
  Company Number: 2004075896

PATIENT
  Age: 54 Year
  Sex: Female
  Weight: 108.8633 kg

DRUGS (8)
  1. DRAMAMINE [Suspect]
     Indication: MOTION SICKNESS
     Dosage: 1 TABLET EVERY 4 HOURS AS
     Dates: end: 20040903
  2. LEVOTHYROXINE SODIUM [Concomitant]
  3. OMEPRAZOLE [Concomitant]
  4. CLOPIDOGREL BISULFATE [Concomitant]
  5. LOTREL [Concomitant]
  6. PAROXETINE HYDROCHLORIDE [Concomitant]
  7. INSULIN [Concomitant]
  8. METOFORMIN HYDROCHLORIDE [Concomitant]

REACTIONS (8)
  - ANKLE FRACTURE [None]
  - CARDIAC ARREST [None]
  - DRUG HYPERSENSITIVITY [None]
  - FALL [None]
  - FIBULA FRACTURE [None]
  - LOSS OF CONSCIOUSNESS [None]
  - PARALYSIS [None]
  - TREMOR [None]
